FAERS Safety Report 6700590-X (Version None)
Quarter: 2010Q2

REPORT INFORMATION
  Report Type: 
  Country: None (occurrence: None)
  Receive Date: 20100428
  Receipt Date: 20100423
  Transmission Date: 20101027
  Serious: Yes (Disabling)
  Sender: FDA-Public Use
  Company Number: CA-ASTRAZENECA-2010SE14561

PATIENT
  Age: 50 Year
  Sex: Male

DRUGS (4)
  1. CRESTOR [Suspect]
     Indication: HYPERCHOLESTEROLAEMIA
     Route: 048
     Dates: start: 20100301, end: 20100312
  2. DIOVAN [Concomitant]
     Indication: HYPERTENSION
  3. ATIVAN [Concomitant]
  4. PREVACID [Concomitant]

REACTIONS (2)
  - DIPLOPIA [None]
  - EXTRAOCULAR MUSCLE PARESIS [None]
